FAERS Safety Report 11228316 (Version 1)
Quarter: 2015Q2

REPORT INFORMATION
  Report Type: Report from Study
  Country: US (occurrence: US)
  Receive Date: 20150630
  Receipt Date: 20150630
  Transmission Date: 20150821
  Serious: Yes (Hospitalization, Other)
  Sender: FDA-Public Use
  Company Number: US-BAYER-2015-279337

PATIENT
  Age: 76 Year
  Sex: Male

DRUGS (2)
  1. NEXAVAR [Suspect]
     Active Substance: SORAFENIB
     Indication: COLORECTAL CANCER
     Dosage: 200 MG, BID
     Route: 048
     Dates: start: 20150511, end: 20150617
  2. NEXAVAR [Suspect]
     Active Substance: SORAFENIB
     Indication: THYROID CANCER

REACTIONS (7)
  - Asthenia [None]
  - Abasia [None]
  - Body temperature increased [None]
  - Loss of consciousness [None]
  - Fatigue [None]
  - Hyperhidrosis [None]
  - Pruritus [None]

NARRATIVE: CASE EVENT DATE: 201505
